FAERS Safety Report 7445882-4 (Version None)
Quarter: 2011Q2

REPORT INFORMATION
  Report Type: 
  Country: None (occurrence: None)
  Receive Date: 20110419
  Receipt Date: 20110405
  Transmission Date: 20111010
  Serious: Yes (Other)
  Sender: FDA-Public Use
  Company Number: 030107

PATIENT
  Sex: Female

DRUGS (7)
  1. PAMELOR [Concomitant]
  2. METFORMIN HCL [Concomitant]
  3. LACOSAMIDE [Suspect]
  4. TRILEPTAL [Concomitant]
  5. SEROQUEL [Concomitant]
  6. RESTORIL /00393701/ [Concomitant]
  7. TRILEPTAL [Concomitant]

REACTIONS (5)
  - ABNORMAL BEHAVIOUR [None]
  - SYNCOPE [None]
  - ADRENAL INSUFFICIENCY [None]
  - SELF-INJURIOUS IDEATION [None]
  - SUICIDE ATTEMPT [None]
